FAERS Safety Report 9630639 (Version 1)
Quarter: 2013Q4

REPORT INFORMATION
  Report Type: Spontaneous
  Country: US (occurrence: None)
  Receive Date: 20131016
  Receipt Date: 20131016
  Transmission Date: 20140711
  Serious: Yes (Other)
  Sender: FDA-Public Use
  Company Number: CIP-2013-00183

PATIENT
  Age: 10 Year
  Sex: 0

DRUGS (5)
  1. IRINOTECAN [Suspect]
     Indication: EPENDYMOMA
     Dosage: 90 MG/M2 (DAYS 1-5 IN 3 WEEK CYCLES), ORAL
  2. VINCRISTINE [Suspect]
     Indication: EPENDYMOMA
     Dosage: 1.5 MG/M2 (DAY 1 IN 3 WEEK CYCLES OVER 1 MINUTE), INTRAVENOUS
  3. TEMOZOLOMIDE [Suspect]
     Indication: EPENDYMOMA
     Dosage: 150 MG/M2 (DAYS 1-5 IN 3 WEEK CYCLES), ORAL
  4. BEVACIZUMAB [Suspect]
     Indication: EPENDYMOMA
     Dosage: 15 MG/KG, DAYS 1 IN 3 WEEK CYCLES OVER 90 MINUTES)
  5. CEFIXIME [Concomitant]

REACTIONS (2)
  - Diarrhoea [None]
  - Neuropathy peripheral [None]
